FAERS Safety Report 18174968 (Version 1)
Quarter: 2020Q3

REPORT INFORMATION
  Report Type: Spontaneous
  Country: AU (occurrence: AU)
  Receive Date: 20200820
  Receipt Date: 20200820
  Transmission Date: 20201103
  Serious: Yes (Other)
  Sender: FDA-Public Use
  Company Number: AU-ASTRAZENECA-2020SF03212

PATIENT
  Age: 13694 Day
  Sex: Male

DRUGS (2)
  1. SOTALOL. [Concomitant]
     Active Substance: SOTALOL
  2. PULMICORT RESPULES [Suspect]
     Active Substance: BUDESONIDE
     Indication: NASAL SEPTAL OPERATION
     Dosage: 1 MG/2ML
     Route: 055

REACTIONS (4)
  - Heart rate abnormal [Unknown]
  - Headache [Unknown]
  - Off label use [Unknown]
  - Loss of consciousness [Unknown]

NARRATIVE: CASE EVENT DATE: 20200809
